FAERS Safety Report 15947171 (Version 1)
Quarter: 2019Q1

REPORT INFORMATION
  Report Type: Spontaneous
  Country: NL (occurrence: NL)
  Receive Date: 20190211
  Receipt Date: 20190211
  Transmission Date: 20190417
  Serious: Yes (Other)
  Sender: FDA-Public Use
  Company Number: NL-MYLANLABS-2019M1011685

PATIENT
  Age: 75 Year
  Sex: Female
  Weight: 105 kg

DRUGS (3)
  1. AMIODARONE [Suspect]
     Active Substance: AMIODARONE
     Indication: ARRHYTHMIA
     Dosage: 1X1PER DAG
     Route: 048
     Dates: start: 20170108
  2. VALSARTAN. [Concomitant]
     Active Substance: VALSARTAN
     Dosage: 1 X
  3. XARELTO [Concomitant]
     Active Substance: RIVAROXABAN
     Dosage: 1 X

REACTIONS (6)
  - Pruritus [Not Recovered/Not Resolved]
  - Neuropathy peripheral [Not Recovered/Not Resolved]
  - Thyroid function test abnormal [Unknown]
  - Tremor [Not Recovered/Not Resolved]
  - Weight increased [Not Recovered/Not Resolved]
  - Visual impairment [Not Recovered/Not Resolved]

NARRATIVE: CASE EVENT DATE: 201702
